FAERS Safety Report 6725476-6 (Version None)
Quarter: 2010Q2

REPORT INFORMATION
  Report Type: 
  Country: None (occurrence: None)
  Receive Date: 20100513
  Receipt Date: 20100513
  Transmission Date: 20101027
  Serious: Yes (Other)
  Sender: FDA-Public Use
  Company Number: None

PATIENT
  Age: 71 Year
  Sex: Female
  Weight: 71.6683 kg

DRUGS (2)
  1. LAMOTRIGINE [Suspect]
     Indication: NEUROPATHY PERIPHERAL
     Dosage: 1 TAB. TWICE DAILY
     Dates: start: 20100201
  2. LAMOTRIGINE [Suspect]
     Indication: NEUROPATHY PERIPHERAL
     Dosage: 1 TAB. TWICE DAILY
     Dates: start: 20100301

REACTIONS (11)
  - ANXIETY [None]
  - ASTHENIA [None]
  - DECREASED APPETITE [None]
  - DIZZINESS [None]
  - DRY MOUTH [None]
  - FATIGUE [None]
  - FLUSHING [None]
  - INSOMNIA [None]
  - MALAISE [None]
  - RHINORRHOEA [None]
  - SNEEZING [None]
